FAERS Safety Report 9012422 (Version 5)
Quarter: 2013Q2

REPORT INFORMATION
  Report Type: Report from Study
  Country: BE (occurrence: BE)
  Receive Date: 20130114
  Receipt Date: 20130401
  Transmission Date: 20140414
  Serious: Yes (Death, Life-Threatening)
  Sender: FDA-Public Use
  Company Number: BE-ASTELLAS-2010US001929

PATIENT
  Age: 45 Year
  Sex: Male
  Weight: 53 kg

DRUGS (8)
  1. BLINDED BAL8557 [Suspect]
     Indication: ASPERGILLUS INFECTION
     Dosage: TID
     Route: 042
     Dates: start: 20070307, end: 20070309
  2. BLINDED BAL8557 [Suspect]
     Dosage: BID
     Route: 042
     Dates: start: 20070309, end: 20070326
  3. PROGRAFT [Suspect]
     Indication: CHRONIC GRAFT VERSUS HOST DISEASE
     Dosage: 1-6 MG DAILY
     Route: 065
     Dates: start: 20050221
  4. MEDROL [Concomitant]
     Indication: CHRONIC GRAFT VERSUS HOST DISEASE
     Dosage: 4-16 MG, PRN
     Route: 048
     Dates: start: 20050816, end: 20070317
  5. ARANESP [Concomitant]
     Indication: ANAEMIA
     Dosage: 500 UG, UID/QD
     Route: 065
     Dates: start: 20070305, end: 20070305
  6. IMURAN                             /00001501/ [Concomitant]
     Indication: CHRONIC GRAFT VERSUS HOST DISEASE
     Dosage: UNK
     Route: 065
     Dates: start: 20061016
  7. OMEPRAZOLE [Concomitant]
     Indication: PROPHYLAXIS AGAINST GASTROINTESTINAL ULCER
     Dosage: 20 MG, UID/QD
     Route: 048
     Dates: start: 20061113, end: 20070312
  8. ZYRTEC [Concomitant]
     Indication: PROPHYLAXIS
     Dosage: 10 MG, PRN
     Route: 048
     Dates: start: 20070312, end: 20070328

REACTIONS (4)
  - Multi-organ failure [Fatal]
  - Pneumonia bacterial [Not Recovered/Not Resolved]
  - Sepsis [Not Recovered/Not Resolved]
  - Renal failure acute [Not Recovered/Not Resolved]
